FAERS Safety Report 8444294-4 (Version None)
Quarter: 2012Q2

REPORT INFORMATION
  Report Type: 
  Country: None (occurrence: None)
  Receive Date: 20120618
  Receipt Date: 20120607
  Transmission Date: 20120825
  Serious: Yes (Other)
  Sender: FDA-Public Use
  Company Number: US-ASTRAZENECA-2012SE25054

PATIENT
  Age: 60 Year
  Sex: Female

DRUGS (3)
  1. GENERIC MEDICATIONS [Suspect]
     Route: 065
  2. CELEBREX [Concomitant]
  3. NEXIUM [Suspect]
     Route: 048

REACTIONS (8)
  - DIZZINESS [None]
  - ACCIDENT [None]
  - VISUAL ACUITY REDUCED [None]
  - DEPRESSION [None]
  - BACK PAIN [None]
  - DRUG INEFFECTIVE [None]
  - EPILEPSY [None]
  - STRESS [None]
